FAERS Safety Report 6038635-5 (Version None)
Quarter: 2009Q1

REPORT INFORMATION
  Report Type: 
  Country: None (occurrence: None)
  Receive Date: 20090115
  Receipt Date: 20090106
  Transmission Date: 20090719
  Serious: Yes (Hospitalization, Other)
  Sender: FDA-Public Use
  Company Number: US-JNJFOC-20090100732

PATIENT
  Sex: Male
  Weight: 95.26 kg

DRUGS (4)
  1. REMICADE [Suspect]
     Indication: PSORIASIS
     Route: 042
  2. SIMVASTATIN [Concomitant]
     Indication: BLOOD CHOLESTEROL
  3. LISINOPRIL [Concomitant]
     Indication: BLOOD PRESSURE
     Dosage: 20-25 MG DAILY, 2-3 YR DURATION
  4. ASPIRIN [Concomitant]
     Indication: PROPHYLAXIS

REACTIONS (4)
  - HOSPITALISATION [None]
  - RASH [None]
  - RASH GENERALISED [None]
  - SKIN TIGHTNESS [None]
